FAERS Safety Report 7241641-6 (Version None)
Quarter: 2011Q1

REPORT INFORMATION
  Report Type: 
  Country: None (occurrence: None)
  Receive Date: 20110124
  Receipt Date: 20110114
  Transmission Date: 20110831
  Serious: Yes (Other)
  Sender: FDA-Public Use
  Company Number: CA-JNJFOC-20110104518

PATIENT
  Sex: Female

DRUGS (6)
  1. REMICADE [Suspect]
     Dosage: 2ND DOSE
     Route: 042
  2. PALAFER [Concomitant]
  3. REMICADE [Suspect]
     Dosage: 2ND DOSE
     Route: 042
  4. REMICADE [Suspect]
     Indication: CROHN'S DISEASE
     Route: 042
  5. REMICADE [Suspect]
     Indication: COLITIS ULCERATIVE
     Route: 042
  6. MULTI-VITAMINS [Concomitant]

REACTIONS (1)
  - CEREBROVASCULAR ACCIDENT [None]
